FAERS Safety Report 10045237 (Version 2)
Quarter: 2016Q3

REPORT INFORMATION
  Report Type: Spontaneous
  Country: FR (occurrence: FR)
  Receive Date: 20140328
  Receipt Date: 20160810
  Transmission Date: 20161108
  Serious: Yes (Life-Threatening, Hospitalization, Other)
  Sender: FDA-Public Use
  Company Number: FR-ASTRAZENECA-2014SE21413

PATIENT
  Age: 31710 Day
  Sex: Male

DRUGS (13)
  1. INEXIUM [Suspect]
     Active Substance: ESOMEPRAZOLE
     Dosage: LONG LASTING TREATMENTS
     Route: 048
     Dates: end: 20140228
  2. RULID [Concomitant]
     Active Substance: ROXITHROMYCIN
     Dosage: LONG LASTING TREATMENTS
     Route: 042
     Dates: start: 20140220, end: 20140224
  3. CALCIPARINE [Concomitant]
     Active Substance: HEPARIN CALCIUM
     Dosage: LONG LASTING TREATMENTS
     Dates: start: 20140214, end: 20140221
  4. DISCOTRINE [Concomitant]
     Active Substance: NITROGLYCERIN
     Dosage: LONG LASTING TREATMENTS
  5. LAROXYL [Concomitant]
     Active Substance: AMITRIPTYLINE
     Dosage: LONG LASTING TREATMENTS
  6. NICORANDIL [Concomitant]
     Active Substance: NICORANDIL
     Dosage: LONG LASTING TREATMENTS
  7. ROCEPHINE [Concomitant]
     Active Substance: CEFTRIAXONE SODIUM
     Dosage: LONG LASTING TREATMENTS
     Route: 042
     Dates: start: 20140220, end: 20140224
  8. PARACETAMOL [Concomitant]
     Active Substance: ACETAMINOPHEN
     Dosage: LONG LASTING TREATMENTS
  9. CLOPIDOGREL [Suspect]
     Active Substance: CLOPIDOGREL BISULFATE
     Dosage: LONG LASTING TREATMENTS
     Route: 048
     Dates: end: 20140225
  10. BISOPROLOL [Concomitant]
     Active Substance: BISOPROLOL
     Dosage: LONG LASTING TREATMENTS
  11. AUGMENTIN [Concomitant]
     Active Substance: AMOXICILLIN\CLAVULANATE POTASSIUM
     Dates: start: 20140215, end: 20140217
  12. KARDEGIC [Suspect]
     Active Substance: ASPIRIN LYSINE
     Dosage: LONG LASTING TREATMENTS
     Route: 048
     Dates: end: 20140225
  13. LASILIX [Concomitant]
     Active Substance: FUROSEMIDE
     Dosage: LONG LASTING TREATMENTS

REACTIONS (5)
  - Bone marrow failure [Unknown]
  - Thrombocytopenia [Unknown]
  - Bronchitis [Unknown]
  - Therapy cessation [Unknown]
  - Cardiac failure [Unknown]

NARRATIVE: CASE EVENT DATE: 20140214
